FAERS Safety Report 16635887 (Version 2)
Quarter: 2019Q3

REPORT INFORMATION
  Report Type: Spontaneous
  Country: US (occurrence: US)
  Receive Date: 20190726
  Receipt Date: 20190826
  Transmission Date: 20191004
  Serious: No
  Sender: FDA-Public Use
  Company Number: US-JNJFOC-20190733218

PATIENT
  Age: 76 Year
  Sex: Female

DRUGS (4)
  1. LASIX [Concomitant]
     Active Substance: FUROSEMIDE
  2. WARFARIN [Concomitant]
     Active Substance: WARFARIN
  3. IMBRUVICA [Suspect]
     Active Substance: IBRUTINIB
     Indication: CHRONIC LYMPHOCYTIC LEUKAEMIA
     Dosage: 160 MG, QD
     Route: 048
     Dates: start: 201601, end: 201812
  4. VITAMINS                           /00067501/ [Concomitant]
     Active Substance: VITAMINS

REACTIONS (6)
  - Hair texture abnormal [Recovered/Resolved]
  - Nail disorder [Recovered/Resolved]
  - Off label use [Unknown]
  - Nail ridging [Recovered/Resolved]
  - Product use issue [Unknown]
  - Nail growth abnormal [Recovered/Resolved]

NARRATIVE: CASE EVENT DATE: 201601
